FAERS Safety Report 26111964 (Version 1)
Quarter: 2025Q4

REPORT INFORMATION
  Report Type: Spontaneous
  Country: US (occurrence: None)
  Receive Date: 20251201
  Receipt Date: 20251201
  Transmission Date: 20260118
  Serious: Yes (Disabling, Other)
  Sender: FDA-CTU
  Company Number: None

PATIENT
  Age: 24 Year
  Sex: Female
  Weight: 99 kg

DRUGS (6)
  1. TIRZEPATIDE [Suspect]
     Active Substance: TIRZEPATIDE
     Dates: start: 20250224, end: 20250421
  2. Buspirone Hel [Concomitant]
  3. ESCITALOPRAM [Concomitant]
     Active Substance: ESCITALOPRAM OXALATE
  4. GABAPENTIN [Concomitant]
     Active Substance: GABAPENTIN
  5. BUPROPION [Concomitant]
     Active Substance: BUPROPION
  6. VIENVA TM [Concomitant]
     Active Substance: ETHINYL ESTRADIOL\LEVONORGESTREL

REACTIONS (7)
  - Nausea [None]
  - Impaired work ability [None]
  - Loss of employment [None]
  - Anxiety [None]
  - Drug ineffective [None]
  - Panic disorder [None]
  - Agoraphobia [None]

NARRATIVE: CASE EVENT DATE: 20250421
